FAERS Safety Report 11055074 (Version 1)
Quarter: 2015Q2

REPORT INFORMATION
  Report Type: Spontaneous
  Country: US (occurrence: US)
  Receive Date: 20150422
  Receipt Date: 20150422
  Transmission Date: 20150821
  Serious: Yes (Hospitalization)
  Sender: FDA-Public Use
  Company Number: US-SA-2014SA113650

PATIENT
  Age: 72 Year
  Sex: Female
  Weight: 61.1 kg

DRUGS (6)
  1. MAXZIDE [Concomitant]
     Active Substance: HYDROCHLOROTHIAZIDE\TRIAMTERENE
     Indication: HYPERTENSION
     Dosage: STRENGTH: 37.5/25 MG
     Dates: start: 1999, end: 201408
  2. VIMPAT [Concomitant]
     Active Substance: LACOSAMIDE
     Indication: CONVULSION PROPHYLAXIS
     Dates: start: 2012
  3. ENOXAPARIN SODIUM - WINTHROP [Suspect]
     Active Substance: ENOXAPARIN SODIUM
     Indication: THROMBOSIS
     Route: 065
     Dates: start: 20140618, end: 20140620
  4. LOTREL [Concomitant]
     Active Substance: AMLODIPINE BESYLATE\BENAZEPRIL HYDROCHLORIDE
     Indication: HYPERTENSION
     Dates: start: 1999
  5. KEPPRA [Concomitant]
     Active Substance: LEVETIRACETAM
     Indication: CONVULSION PROPHYLAXIS
     Dates: start: 201110
  6. MAGNESIUM OXIDE. [Concomitant]
     Active Substance: MAGNESIUM OXIDE
     Indication: NUTRITIONAL SUPPLEMENTATION
     Dates: start: 2012

REACTIONS (1)
  - Rash [Recovered/Resolved]

NARRATIVE: CASE EVENT DATE: 20140619
